FAERS Safety Report 16309791 (Version 2)
Quarter: 2019Q3

REPORT INFORMATION
  Report Type: Report from Study
  Country: AU (occurrence: AU)
  Receive Date: 20190514
  Receipt Date: 20190730
  Transmission Date: 20191004
  Serious: Yes (Other)
  Sender: FDA-Public Use
  Company Number: AU-SA-2019SA130201

PATIENT
  Sex: Female

DRUGS (2)
  1. SONIDEGIB [Suspect]
     Active Substance: SONIDEGIB
     Indication: TRIPLE NEGATIVE BREAST CANCER
     Dosage: 600 MG, QD
     Route: 048
  2. DOCETAXEL. [Suspect]
     Active Substance: DOCETAXEL
     Indication: TRIPLE NEGATIVE BREAST CANCER
     Dosage: 75 MG/M2, TIW

REACTIONS (3)
  - Malignant neoplasm progression [Unknown]
  - Triple negative breast cancer [Unknown]
  - Product use in unapproved indication [Unknown]
